FAERS Safety Report 8485654-5 (Version None)
Quarter: 2012Q3

REPORT INFORMATION
  Report Type: 
  Country: None (occurrence: None)
  Receive Date: 20120703
  Receipt Date: 20120619
  Transmission Date: 20120928
  Serious: Yes (Death)
  Sender: FDA-Public Use
  Company Number: AT-CELGENEUS-009-20785-12062812

PATIENT
  Age: 23 Year
  Sex: Male

DRUGS (2)
  1. THALIDOMIDE [Suspect]
     Indication: MALIGNANT FIBROUS HISTIOCYTOMA
  2. IMATINIB MESYLATE [Concomitant]
     Indication: MALIGNANT FIBROUS HISTIOCYTOMA
     Route: 048

REACTIONS (2)
  - PERICARDIAL EFFUSION [None]
  - MALIGNANT FIBROUS HISTIOCYTOMA [None]
